FAERS Safety Report 5080035-9 (Version None)
Quarter: 2006Q3

REPORT INFORMATION
  Report Type: 
  Country: None (occurrence: None)
  Receive Date: 20060815
  Receipt Date: 20060807
  Transmission Date: 20061208
  Serious: Yes (Death, Hospitalization)
  Sender: FDA-Public Use
  Company Number: 2006CG01342

PATIENT
  Age: 64 Year
  Sex: Female

DRUGS (14)
  1. OMEPRAZOLE [Suspect]
     Route: 048
     Dates: start: 20060630, end: 20060703
  2. MOTILIUM [Suspect]
     Route: 048
     Dates: start: 20060630, end: 20060703
  3. GAVISCON [Suspect]
     Route: 048
     Dates: start: 20060630, end: 20060703
  4. ZOMETA [Suspect]
     Route: 042
     Dates: start: 20060624, end: 20060624
  5. COLTRAMYL [Suspect]
     Route: 048
     Dates: start: 20060629, end: 20060630
  6. MYOLASTAN [Suspect]
     Route: 048
     Dates: start: 20060630, end: 20060702
  7. SYMBICORT [Concomitant]
     Route: 055
  8. BIPRETERAX [Concomitant]
  9. MONO-TILDIEM [Concomitant]
  10. HYPERIUM [Concomitant]
  11. VASTEN [Concomitant]
  12. DIAMICRON [Concomitant]
  13. LAROXYL [Concomitant]
  14. LASILIX [Concomitant]

REACTIONS (1)
  - RENAL FAILURE ACUTE [None]
